FAERS Safety Report 11889310 (Version 1)
Quarter: 2016Q1

REPORT INFORMATION
  Report Type: Spontaneous
  Country: US (occurrence: US)
  Receive Date: 20160105
  Receipt Date: 20160105
  Transmission Date: 20160526
  Serious: No
  Sender: FDA-Public Use
  Company Number: US-BAYER-2016-001635

PATIENT
  Age: 28 Year
  Sex: Male
  Weight: 38.55 kg

DRUGS (5)
  1. DIGOXIN. [Concomitant]
     Active Substance: DIGOXIN
  2. DIVALPROEX [Concomitant]
     Active Substance: DIVALPROEX SODIUM
  3. LISINOPRIL. [Concomitant]
     Active Substance: LISINOPRIL
  4. MIRALAX [Suspect]
     Active Substance: POLYETHYLENE GLYCOL 3350
     Indication: CONSTIPATION
     Dosage: 0.5 DF, PRN
     Route: 048
     Dates: start: 201509, end: 201511
  5. ASPIRIN. [Concomitant]
     Active Substance: ASPIRIN

REACTIONS (2)
  - Product use issue [None]
  - Product use issue [None]

NARRATIVE: CASE EVENT DATE: 201509
